FAERS Safety Report 8093347-1 (Version None)
Quarter: 2012Q1

REPORT INFORMATION
  Report Type: 
  Country: None (occurrence: None)
  Receive Date: 20120128
  Receipt Date: 20110901
  Transmission Date: 20120608
  Serious: No
  Sender: FDA-Public Use
  Company Number: US-ABBOTT-11P-163-0850967-00

PATIENT
  Age: 32 Year
  Sex: Male

DRUGS (5)
  1. METHOTREXATE [Concomitant]
     Indication: PRODUCT USED FOR UNKNOWN INDICATION
     Dosage: WEEKLY
     Route: 048
  2. HUMIRA [Suspect]
     Indication: PSORIATIC ARTHROPATHY
     Dosage: 40 MG EVERY 10 DAYS
     Dates: start: 20071001
  3. TECLONEX [Concomitant]
     Indication: PSORIASIS
     Dosage: PRN
  4. HUMIRA [Suspect]
  5. PROTOPIC [Concomitant]
     Indication: PSORIASIS
     Dosage: PRN

REACTIONS (4)
  - INJECTION SITE PAIN [None]
  - PSORIASIS [None]
  - WRONG TECHNIQUE IN DRUG USAGE PROCESS [None]
  - INCORRECT DOSE ADMINISTERED [None]
